APPROVED DRUG PRODUCT: NANDROLONE DECANOATE
Active Ingredient: NANDROLONE DECANOATE
Strength: 100MG/ML
Dosage Form/Route: INJECTABLE;INJECTION
Application: A087599 | Product #001
Applicant: WATSON LABORATORIES INC
Approved: Oct 6, 1983 | RLD: No | RS: No | Type: DISCN